FAERS Safety Report 4407862-2 (Version None)
Quarter: 2004Q3

REPORT INFORMATION
  Report Type: 
  Country: None (occurrence: None)
  Receive Date: 20040726
  Receipt Date: 20040623
  Transmission Date: 20050211
  Serious: Yes (Death, Other)
  Sender: FDA-Public Use
  Company Number: PHBS2004JP08405

PATIENT
  Age: 63 Year
  Sex: Female
  Weight: 53 kg

DRUGS (5)
  1. SANDIMMUNE [Suspect]
     Indication: STEM CELL TRANSPLANT
     Dosage: 75 MG/D
     Route: 065
     Dates: start: 20030408, end: 20030604
  2. FUNGUARD [Concomitant]
     Dosage: 150 MG/D
     Route: 042
     Dates: start: 20030408
  3. MAXIPIME [Concomitant]
     Dosage: 4 G/D
     Route: 042
     Dates: start: 20030408, end: 20030411
  4. NEO-MINOPHAGEN C [Concomitant]
     Dosage: 40 ML/D
     Route: 042
     Dates: start: 20030408
  5. PREDONINE [Concomitant]
     Dosage: 30-10 MG/D
     Dates: start: 20030408

REACTIONS (16)
  - ABDOMINAL PAIN [None]
  - ALPHA TUMOUR NECROSIS FACTOR INCREASED [None]
  - ANAEMIA [None]
  - BLOOD BETA-D-GLUCAN ABNORMAL [None]
  - C-REACTIVE PROTEIN INCREASED [None]
  - CYTOMEGALOVIRUS INFECTION [None]
  - DEPRESSED LEVEL OF CONSCIOUSNESS [None]
  - DIARRHOEA [None]
  - DRUG LEVEL INCREASED [None]
  - HYPOALBUMINAEMIA [None]
  - HYPOTENSION [None]
  - MALIGNANT NEOPLASM PROGRESSION [None]
  - PANCYTOPENIA [None]
  - PYREXIA [None]
  - RENAL FAILURE [None]
  - THROMBOTIC MICROANGIOPATHY [None]
